FAERS Safety Report 8009276-5 (Version None)
Quarter: 2011Q4

REPORT INFORMATION
  Report Type: 
  Country: None (occurrence: None)
  Receive Date: 20111227
  Receipt Date: 20111215
  Transmission Date: 20120403
  Serious: Yes (Hospitalization)
  Sender: FDA-Public Use
  Company Number: US-ASTRAZENECA-2011SE76791

PATIENT
  Age: 25069 Day
  Sex: Female

DRUGS (30)
  1. FUROSEMIDE [Concomitant]
     Indication: HYPERTENSION
     Route: 048
     Dates: end: 20111207
  2. FLAX OIL [Concomitant]
     Indication: HYPERLIPIDAEMIA
     Route: 048
  3. ASPIRIN [Concomitant]
     Route: 048
     Dates: start: 20110824
  4. METOPROLOL SUCCINATE [Concomitant]
     Indication: MYOCARDIAL INFARCTION
     Route: 048
     Dates: end: 20111207
  5. VITAMIN D [Concomitant]
     Indication: VITAMIN SUPPLEMENTATION
     Route: 048
  6. HYDROCODONE BITARTRATE AND ACETAMINOPHEN [Concomitant]
     Indication: PAIN
     Dosage: 5/500 AS NEEDED
     Route: 048
  7. IBUPROFEN [Concomitant]
     Indication: PAIN
     Dosage: AS NEEDED
     Route: 048
  8. MULTIPLE VITAMIN [Concomitant]
     Indication: VITAMIN SUPPLEMENTATION
     Route: 048
  9. CRANBERRY FRUIT WITH VITAMIN C [Concomitant]
     Indication: VITAMIN SUPPLEMENTATION
     Route: 048
  10. ADVAIR DISKUS 100/50 [Concomitant]
     Indication: ASTHMA
     Dosage: 100/50 ONE PUFF TWICE DAILY
     Route: 055
  11. ACETAMINOPHEN [Concomitant]
     Indication: PAIN
     Route: 048
  12. LOSARTAN POTASSIUM [Concomitant]
     Indication: HYPERTENSION
     Route: 048
     Dates: end: 20111207
  13. CINNAMON+CHROM [Concomitant]
     Indication: VITAMIN SUPPLEMENTATION
     Route: 048
  14. PROMETHAZINE [Concomitant]
     Indication: NAUSEA
     Route: 048
  15. ALLOPURINOL [Concomitant]
     Indication: BLOOD URIC ACID INCREASED
     Route: 048
  16. VITAMIN B-12 [Concomitant]
     Indication: VITAMIN SUPPLEMENTATION
     Route: 048
  17. PLAVIX [Suspect]
     Route: 048
     Dates: start: 20111117
  18. AMLODIPINE [Concomitant]
     Indication: HYPERTENSION
     Route: 048
     Dates: end: 20110831
  19. AMLODIPINE [Concomitant]
     Route: 048
     Dates: start: 20110831
  20. CALCIUM+VITAMIN D [Concomitant]
     Indication: VITAMIN SUPPLEMENTATION
     Route: 048
  21. ENALAPRIL MALEATE [Concomitant]
     Indication: HYPERTENSION
     Route: 048
     Dates: end: 20111207
  22. ACAI [Concomitant]
     Indication: VITAMIN SUPPLEMENTATION
     Route: 048
  23. VESICARE [Concomitant]
     Indication: BLADDER DISORDER
     Route: 048
  24. JANUVIA [Concomitant]
     Indication: TYPE 2 DIABETES MELLITUS
     Route: 048
  25. PLAVIX [Suspect]
     Indication: CORONARY ARTERY DISEASE
     Route: 048
     Dates: start: 20110825, end: 20111101
  26. SIMVASTATIN [Concomitant]
     Indication: HYPERLIPIDAEMIA
     Route: 048
  27. FISH OIL [Concomitant]
     Indication: HYPERLIPIDAEMIA
     Route: 048
  28. AMILORIDE HCL AND HYDROCHLOROTHIAZIDE [Concomitant]
     Indication: HYPERTENSION
     Dosage: 5/50 EVERY MORNING
     Route: 048
     Dates: end: 20111207
  29. MECLIZINE [Concomitant]
     Indication: DIZZINESS
     Route: 048
  30. CLOPIDOGREL [Concomitant]
     Indication: ANTIPLATELET THERAPY
     Dates: start: 20090912

REACTIONS (2)
  - RENAL FAILURE ACUTE [None]
  - ATRIOVENTRICULAR BLOCK SECOND DEGREE [None]
